FAERS Safety Report 4705480-X (Version None)
Quarter: 2005Q2

REPORT INFORMATION
  Report Type: 
  Country: None (occurrence: None)
  Receive Date: 20050630
  Receipt Date: 20050630
  Transmission Date: 20051028
  Serious: Yes (Life-Threatening, Hospitalization)
  Sender: FDA-Public Use
  Company Number: None

PATIENT
  Age: 75 Year
  Sex: Male
  Weight: 72.6 kg

DRUGS (12)
  1. HEPARIN [Suspect]
     Dosage: FLUSH, TO 3 PORTS, FLUSH
     Dates: start: 20040818, end: 20040818
  2. PRILOSEC [Concomitant]
  3. METIPRANOLOL [Concomitant]
  4. FOSINOPRIL [Concomitant]
  5. AVANDIA [Concomitant]
  6. GLYBURIDE (DIABETA, MICRONASE) [Concomitant]
  7. ALOH/MGOH/SIMTH EXTRA STRENGTH [Concomitant]
  8. TEMAZEPAM (RESTORIL) [Concomitant]
  9. GABAPENTIN [Concomitant]
  10. AMITRIPTYLINE HCL [Concomitant]
  11. GENTAMICIN S04 [Concomitant]
  12. DEXAMETHASONE [Concomitant]

REACTIONS (1)
  - COAGULOPATHY [None]
